FAERS Safety Report 4517641-3 (Version None)
Quarter: 2004Q4

REPORT INFORMATION
  Report Type: 
  Country: None (occurrence: None)
  Receive Date: 20041203
  Receipt Date: 20041129
  Transmission Date: 20050328
  Serious: Yes (Hospitalization)
  Sender: FDA-Public Use
  Company Number: US-JNJFOC-20041106773

PATIENT
  Sex: Female

DRUGS (7)
  1. DURAGESIC [Suspect]
     Route: 062
  2. DURAGESIC [Suspect]
     Route: 062
  3. DURAGESIC [Suspect]
     Route: 062
  4. DURAGESIC [Suspect]
     Route: 062
  5. CELEBREX [Concomitant]
     Route: 049
  6. ZOLOFT [Concomitant]
     Route: 049
  7. LORACET [Concomitant]
     Route: 049

REACTIONS (6)
  - DIZZINESS [None]
  - FEELING ABNORMAL [None]
  - HEART RATE INCREASED [None]
  - PAIN IN EXTREMITY [None]
  - SPINAL FUSION ACQUIRED [None]
  - TREMOR [None]
